FAERS Safety Report 18981622 (Version 2)
Quarter: 2021Q3

REPORT INFORMATION
  Report Type: Spontaneous
  Country: US (occurrence: US)
  Receive Date: 20210308
  Receipt Date: 20210917
  Transmission Date: 20211014
  Serious: Yes (Other)
  Sender: FDA-Public Use
  Company Number: US-PFIZER INC-2021215367

PATIENT
  Age: 60 Year
  Sex: Female

DRUGS (1)
  1. SULFASALAZINE. [Suspect]
     Active Substance: SULFASALAZINE
     Indication: SYSTEMIC LUPUS ERYTHEMATOSUS
     Dosage: 500 MG
     Dates: start: 2011

REACTIONS (5)
  - Off label use [Unknown]
  - Drug dependence [Unknown]
  - Single functional kidney [Unknown]
  - Neoplasm malignant [Unknown]
  - Arthritis [Unknown]

NARRATIVE: CASE EVENT DATE: 2011
